FAERS Safety Report 4319268-5 (Version None)
Quarter: 2004Q1

REPORT INFORMATION
  Report Type: 
  Country: None (occurrence: None)
  Receive Date: 20040316
  Receipt Date: 20040227
  Transmission Date: 20041129
  Serious: Yes (Disabling)
  Sender: FDA-Public Use
  Company Number: DSA_24050_2004

PATIENT
  Age: 64 Year
  Sex: Male

DRUGS (5)
  1. ENALAPRIL MALEATE [Suspect]
     Dosage: 5 MG QAM PO
     Route: 048
     Dates: start: 20021101
  2. VITAMIN C SUPPLEMENT (ASCORBIC ACID) [Concomitant]
  3. CALCIUM SUPPLEMENT [Concomitant]
  4. BETALOC [Concomitant]
  5. MILK THISTLE (SILIBININ) [Concomitant]

REACTIONS (7)
  - BALANCE DISORDER [None]
  - CALCINOSIS [None]
  - CONDITION AGGRAVATED [None]
  - CONFUSIONAL STATE [None]
  - COORDINATION ABNORMAL [None]
  - MIGRAINE [None]
  - SPINAL DISORDER [None]
